FAERS Safety Report 9416920 (Version 2)
Quarter: 2013Q3

REPORT INFORMATION
  Report Type: Spontaneous
  Country: VE (occurrence: VE)
  Receive Date: 20130724
  Receipt Date: 20130919
  Transmission Date: 20140515
  Serious: Yes (Hospitalization)
  Sender: FDA-Public Use
  Company Number: VE-AMGEN-VENSP2013051109

PATIENT
  Age: 62 Year
  Sex: Male
  Weight: 84 kg

DRUGS (6)
  1. VECTIBIX [Suspect]
     Indication: COLORECTAL CANCER METASTATIC
     Dosage: 500 MG, EVERY 15 DAYS
     Route: 042
     Dates: start: 20130204, end: 20130417
  2. NEUPOGEN [Concomitant]
     Indication: PRODUCT USED FOR UNKNOWN INDICATION
     Dosage: UNK, FOR 3 CONSECUTIVE DAYS ON 8 AND 15 OF EACH CYCLE
     Route: 065
  3. LEUCOVORIN                         /00566701/ [Concomitant]
     Indication: COLORECTAL CANCER METASTATIC
     Dosage: 400 MG/M2, DAILY BOLUS
  4. 5-FLUORACILO [Concomitant]
     Indication: COLORECTAL CANCER METASTATIC
     Dosage: 400 MG, DAILY
     Route: 040
  5. 5-FLUORACILO [Concomitant]
     Dosage: 2400 MG, UNK
     Route: 041
  6. IRINOTECAN [Concomitant]
     Indication: COLORECTAL CANCER METASTATIC
     Dosage: 180 MG/M2, DAY 1
     Route: 042

REACTIONS (1)
  - Skin ulcer [Unknown]
